FAERS Safety Report 7700496-3 (Version None)
Quarter: 2011Q3

REPORT INFORMATION
  Report Type: 
  Country: None (occurrence: None)
  Receive Date: 20110822
  Receipt Date: 20110808
  Transmission Date: 20111222
  Serious: Yes (Other)
  Sender: FDA-Public Use
  Company Number: DE-CELGENEUS-062-21880-11081370

PATIENT

DRUGS (5)
  1. DEXAMETHASONE [Suspect]
     Indication: MULTIPLE MYELOMA
     Route: 065
  2. PEGFILGRASTIM [Concomitant]
  3. REVLIMID [Suspect]
     Indication: MULTIPLE MYELOMA
     Route: 048
  4. HEPARIN [Concomitant]
     Indication: THROMBOSIS PROPHYLAXIS
     Route: 065
  5. ADRIAMYCIN PFS [Suspect]
     Indication: MULTIPLE MYELOMA

REACTIONS (5)
  - EMBOLISM VENOUS [None]
  - HAEMATOLOGY TEST ABNORMAL [None]
  - ADVERSE EVENT [None]
  - DISEASE PROGRESSION [None]
  - INFECTION [None]
